FAERS Safety Report 8136998-8 (Version None)
Quarter: 2012Q1

REPORT INFORMATION
  Report Type: 
  Country: None (occurrence: None)
  Receive Date: 20120215
  Receipt Date: 20120206
  Transmission Date: 20120608
  Serious: Yes (Hospitalization, Other)
  Sender: FDA-Public Use
  Company Number: AU-BIOGENIDEC-2010BI018884

PATIENT
  Age: 61 Year
  Sex: Female

DRUGS (4)
  1. DITROPAN [Concomitant]
     Route: 048
  2. ATACAND HCT [Concomitant]
     Route: 048
  3. TYSABRI [Suspect]
     Indication: RELAPSING-REMITTING MULTIPLE SCLEROSIS
     Route: 042
     Dates: start: 20080620, end: 20100606
  4. NORVASC [Concomitant]
     Route: 048

REACTIONS (2)
  - PROGRESSIVE MULTIFOCAL LEUKOENCEPHALOPATHY [None]
  - IMMUNE RECONSTITUTION SYNDROME [None]
